FAERS Safety Report 4642171-8 (Version None)
Quarter: 2005Q2

REPORT INFORMATION
  Report Type: 
  Country: None (occurrence: None)
  Receive Date: 20050420
  Receipt Date: 20050407
  Transmission Date: 20051028
  Serious: Yes (Death, Hospitalization)
  Sender: FDA-Public Use
  Company Number: 2004AP06325

PATIENT
  Age: 78 Year
  Sex: Male
  Weight: 72 kg

DRUGS (10)
  1. IRESSA [Suspect]
     Indication: NON-SMALL CELL LUNG CANCER
     Dosage: 250 MG DAILY PO
     Route: 048
     Dates: start: 20041026
  2. LOZAP [Concomitant]
  3. PLENDIL [Concomitant]
  4. DIGOXIN [Concomitant]
  5. ANOPYRIN [Concomitant]
  6. EUPHYLLIN [Concomitant]
  7. ATROVENT [Concomitant]
  8. TADENAN [Concomitant]
  9. NEUROL [Concomitant]
  10. DEPREX [Concomitant]

REACTIONS (1)
  - PULMONARY EMBOLISM [None]
